FAERS Safety Report 21620514 (Version 2)
Quarter: 2022Q4

REPORT INFORMATION
  Report Type: Spontaneous
  Country: AU (occurrence: None)
  Receive Date: 20221121
  Receipt Date: 20221227
  Transmission Date: 20230113
  Serious: Yes (Other)
  Sender: FDA-Public Use
  Company Number: AU-ROCHE-3206010

PATIENT
  Age: 26 Year
  Sex: Male

DRUGS (1)
  1. OCREVUS [Suspect]
     Active Substance: OCRELIZUMAB
     Indication: Product used for unknown indication
     Route: 065

REACTIONS (5)
  - Jaundice [Unknown]
  - Tachycardia [Unknown]
  - Abdominal pain upper [Unknown]
  - Hepatitis [Recovered/Resolved]
  - Epstein-Barr virus infection [Unknown]

NARRATIVE: CASE EVENT DATE: 20221010
